FAERS Safety Report 14684538 (Version 1)
Quarter: 2018Q1

REPORT INFORMATION
  Report Type: Report from Study
  Country: CA (occurrence: CA)
  Receive Date: 20180327
  Receipt Date: 20180327
  Transmission Date: 20180509
  Serious: Yes (Death, Other)
  Sender: FDA-Public Use
  Company Number: CA-REGENERON PHARMACEUTICALS, INC.-2018-18405

PATIENT

DRUGS (8)
  1. EYLEA [Suspect]
     Active Substance: AFLIBERCEPT
     Indication: DIABETIC RETINAL OEDEMA
     Dosage: UNK (OU - TOTAL OF 8 INJECTIONS RECEIVED)
     Dates: start: 20170403, end: 20171221
  2. EYLEA [Suspect]
     Active Substance: AFLIBERCEPT
     Dosage: UNK UNK, ONCE (OU)
     Dates: start: 20170615, end: 20170615
  3. EYLEA [Suspect]
     Active Substance: AFLIBERCEPT
     Dosage: UNK UNK, ONCE (OU)
     Dates: start: 20170921, end: 20170921
  4. EYLEA [Suspect]
     Active Substance: AFLIBERCEPT
     Dosage: UNK UNK, ONCE (OU)
     Dates: start: 20170713, end: 20170713
  5. EYLEA [Suspect]
     Active Substance: AFLIBERCEPT
     Dosage: UNK UNK, ONCE (OU)
     Dates: start: 20170811, end: 20170811
  6. EYLEA [Suspect]
     Active Substance: AFLIBERCEPT
     Dosage: UNK UNK, ONCE (OU)
     Dates: start: 20171109, end: 20171109
  7. EYLEA [Suspect]
     Active Substance: AFLIBERCEPT
     Dosage: UNK UNK, ONCE (OU)
     Dates: start: 20170505, end: 20170505
  8. EYLEA [Suspect]
     Active Substance: AFLIBERCEPT
     Dosage: UNK UNK, ONCE (OU - LAST INJECTION)
     Dates: start: 20171221, end: 20171221

REACTIONS (1)
  - Death [Fatal]

NARRATIVE: CASE EVENT DATE: 20180126
